FAERS Safety Report 9999149 (Version 1)
Quarter: 2014Q1

REPORT INFORMATION
  Report Type: Spontaneous
  Country: IT (occurrence: None)
  Receive Date: 20140310
  Receipt Date: 20140310
  Transmission Date: 20141002
  Serious: Yes (Other)
  Sender: FDA-Public Use
  Company Number: 2014P1001834

PATIENT
  Age: 50 Year
  Sex: Female

DRUGS (2)
  1. TOPIRAMATE [Suspect]
     Indication: HEADACHE
     Dates: start: 201001
  2. TOPIRAMATE [Suspect]
     Indication: WEIGHT INCREASED
     Dates: start: 201001

REACTIONS (3)
  - Granuloma annulare [None]
  - Skin hyperpigmentation [None]
  - Weight decreased [None]
